FAERS Safety Report 10076781 (Version 2)
Quarter: 2014Q2

REPORT INFORMATION
  Report Type: Spontaneous
  Country: US (occurrence: US)
  Receive Date: 20140414
  Receipt Date: 20140506
  Transmission Date: 20141212
  Serious: Yes (Hospitalization, Other)
  Sender: FDA-Public Use
  Company Number: US-PFIZER INC-2014099706

PATIENT
  Age: 68 Year
  Sex: Male
  Weight: 50.2 kg

DRUGS (2)
  1. SUTENT [Suspect]
     Indication: RENAL CELL CARCINOMA
     Dosage: UNK
  2. SUTENT [Suspect]
     Dosage: UNK

REACTIONS (6)
  - Malaise [Unknown]
  - Coronary artery thrombosis [Unknown]
  - Disease progression [Unknown]
  - Renal cell carcinoma [Unknown]
  - Abnormal faeces [Unknown]
  - Feeling abnormal [Unknown]
